FAERS Safety Report 9171630 (Version 2)
Quarter: 2013Q2

REPORT INFORMATION
  Report Type: Spontaneous
  Country: IE (occurrence: IE)
  Receive Date: 20130319
  Receipt Date: 20130521
  Transmission Date: 20140414
  Serious: Yes (Hospitalization)
  Sender: FDA-Public Use
  Company Number: IE-ASTRAZENECA-2013SE17461

PATIENT
  Age: 3 Month
  Sex: Male

DRUGS (6)
  1. SYNAGIS [Suspect]
     Indication: PREMATURE BABY
     Route: 030
     Dates: start: 20130103, end: 20130103
  2. SYNAGIS [Suspect]
     Indication: PREMATURE BABY
     Route: 030
     Dates: start: 20130207
  3. ABIDEC [Concomitant]
  4. FERINSOL [Concomitant]
  5. LACTULOSE [Concomitant]
  6. OMEPRAZOLE [Concomitant]

REACTIONS (3)
  - Vomiting [Recovering/Resolving]
  - Dehydration [Recovering/Resolving]
  - Gastrooesophageal reflux disease [Unknown]
